FAERS Safety Report 25574296 (Version 1)
Quarter: 2025Q3

REPORT INFORMATION
  Report Type: Report from Study
  Country: US (occurrence: US)
  Receive Date: 20250717
  Receipt Date: 20250717
  Transmission Date: 20251021
  Serious: Yes (Hospitalization, Other)
  Sender: JOHNSON AND JOHNSON
  Company Number: US-JNJFOC-20250713212

PATIENT
  Age: 48 Year
  Sex: Male

DRUGS (3)
  1. SPRAVATO [Suspect]
     Active Substance: ESKETAMINE
     Indication: Depression
     Route: 045
     Dates: start: 20250417, end: 20250417
  2. SPRAVATO [Suspect]
     Active Substance: ESKETAMINE
     Route: 045
     Dates: start: 20250422, end: 20250701
  3. SPRAVATO [Suspect]
     Active Substance: ESKETAMINE
     Route: 045
     Dates: start: 20250709, end: 20250709

REACTIONS (7)
  - Dissociation [Recovered/Resolved]
  - Paranoia [Unknown]
  - Drug intolerance [Unknown]
  - Physical examination abnormal [Unknown]
  - Oxygen saturation abnormal [Unknown]
  - Tachycardia [Unknown]
  - Agitation [Unknown]

NARRATIVE: CASE EVENT DATE: 20250709
